FAERS Safety Report 8598947-8 (Version None)
Quarter: 2012Q3

REPORT INFORMATION
  Report Type: 
  Country: None (occurrence: None)
  Receive Date: 20120816
  Receipt Date: 20120807
  Transmission Date: 20120928
  Serious: Yes (Other)
  Sender: FDA-Public Use
  Company Number: US-ASTRAZENECA-2011SE03469

PATIENT
  Age: 68 Year
  Sex: Male

DRUGS (3)
  1. NEXIUM [Suspect]
     Indication: GASTROOESOPHAGEAL REFLUX DISEASE
     Route: 048
  2. NEXIUM [Suspect]
     Indication: OESOPHAGEAL ULCER
     Route: 048
  3. OMEPRAZOLE [Suspect]
     Route: 048

REACTIONS (8)
  - GASTROOESOPHAGEAL REFLUX DISEASE [None]
  - THROAT CANCER [None]
  - DYSPEPSIA [None]
  - DRUG DOSE OMISSION [None]
  - OFF LABEL USE [None]
  - NEOPLASM MALIGNANT [None]
  - DRUG EFFECT DECREASED [None]
  - DRUG INEFFECTIVE [None]
